FAERS Safety Report 26017572 (Version 1)
Quarter: 2025Q4

REPORT INFORMATION
  Report Type: Spontaneous
  Country: US (occurrence: US)
  Receive Date: 20251110
  Receipt Date: 20251110
  Transmission Date: 20260117
  Serious: Yes (Hospitalization, Other)
  Sender: LUPIN
  Company Number: US-MLMSERVICE-20251022-PI685656-00275-1

PATIENT
  Age: 20 Year
  Sex: Male

DRUGS (2)
  1. QUETIAPINE FUMARATE [Suspect]
     Active Substance: QUETIAPINE FUMARATE
     Indication: Obsessive-compulsive disorder
     Dosage: 100 MILLIGRAM, QD
  2. CLOMIPRAMINE [Suspect]
     Active Substance: CLOMIPRAMINE
     Indication: Obsessive-compulsive disorder
     Dosage: 25 MILLIGRAM, QD
     Dates: start: 2022

REACTIONS (3)
  - Serotonin syndrome [Recovered/Resolved]
  - Intentional product use issue [Recovered/Resolved]
  - Off label use [Unknown]
